FAERS Safety Report 7489482-9 (Version None)
Quarter: 2011Q2

REPORT INFORMATION
  Report Type: 
  Country: None (occurrence: None)
  Receive Date: 20110518
  Receipt Date: 20110513
  Transmission Date: 20111010
  Serious: Yes (Hospitalization, Other)
  Sender: FDA-Public Use
  Company Number: US-GENENTECH-314483

PATIENT
  Sex: Female
  Weight: 83 kg

DRUGS (1)
  1. RITUXAN [Suspect]
     Indication: HEART TRANSPLANT
     Dosage: 690 MG, 1/WEEK
     Route: 042
     Dates: start: 20101202

REACTIONS (2)
  - MENTAL STATUS CHANGES [None]
  - LOSS OF CONSCIOUSNESS [None]
